FAERS Safety Report 21921105 (Version 1)
Quarter: 2023Q1

REPORT INFORMATION
  Report Type: Spontaneous
  Country: GB (occurrence: GB)
  Receive Date: 20230127
  Receipt Date: 20230127
  Transmission Date: 20230417
  Serious: Yes (Hospitalization)
  Sender: FDA-Public Use
  Company Number: None

PATIENT

DRUGS (10)
  1. NINLARO [Suspect]
     Active Substance: IXAZOMIB CITRATE
     Indication: Product used for unknown indication
     Dosage: 4 MILLIGRAM
     Route: 065
  2. DULOXETINE [Concomitant]
     Active Substance: DULOXETINE
     Dosage: 60 MICROGRAM
     Route: 065
  3. POLYETHYLENE GLYCOL 3350\POTASSIUM CHLORIDE\SODIUM BICARBONATE\SODIUM [Concomitant]
     Active Substance: POLYETHYLENE GLYCOL 3350\POTASSIUM CHLORIDE\SODIUM BICARBONATE\SODIUM CHLORIDE
     Dosage: UNK, BID
     Route: 048
  4. MORPHINE [Concomitant]
     Active Substance: MORPHINE
     Dosage: 10 MILLIGRAM
     Route: 065
  5. OMEPRAZOLE [Concomitant]
     Active Substance: OMEPRAZOLE
     Dosage: 20 MILLIGRAM, BID
     Route: 065
  6. ALBUTEROL [Concomitant]
     Active Substance: ALBUTEROL
     Dosage: 100 MICROGRAM
     Route: 050
  7. TIOTROPIUM BROMIDE [Concomitant]
     Active Substance: TIOTROPIUM BROMIDE
     Dosage: 10 MICROGRAM
     Route: 050
  8. TIOTROPIUM [Concomitant]
     Active Substance: TIOTROPIUM
     Dosage: UNK
     Route: 050
  9. MORPHINE SULFATE [Suspect]
     Active Substance: MORPHINE SULFATE
     Dosage: 10 MILLIGRAM, BID
     Route: 065
  10. MORPHINE SULFATE [Suspect]
     Active Substance: MORPHINE SULFATE
     Dosage: 30 MILLIGRAM, BID
     Route: 065

REACTIONS (2)
  - Arthralgia [Unknown]
  - Rash [Unknown]
